FAERS Safety Report 6065109-8 (Version None)
Quarter: 2009Q1

REPORT INFORMATION
  Report Type: 
  Country: None (occurrence: None)
  Receive Date: 20090130
  Receipt Date: 20090121
  Transmission Date: 20090719
  Serious: Yes (Hospitalization)
  Sender: FDA-Public Use
  Company Number: GXKR2009GB01021

PATIENT
  Age: 9 Year
  Sex: Male

DRUGS (4)
  1. LAMOTRIGINE [Suspect]
  2. VALPROIC ACID [Suspect]
  3. CLOBAZAM (CLOBAZAM) [Suspect]
  4. ETHOSUXIMIDE [Concomitant]

REACTIONS (10)
  - ANGIOEDEMA [None]
  - BLISTER [None]
  - COMA [None]
  - DEPRESSED LEVEL OF CONSCIOUSNESS [None]
  - DRUG INTERACTION [None]
  - DRUG TOXICITY [None]
  - ERYTHEMA [None]
  - HYPOXIA [None]
  - NECROSIS [None]
  - SWEAT GLAND DISORDER [None]
